FAERS Safety Report 10344412 (Version 1)
Quarter: 2014Q3

REPORT INFORMATION
  Report Type: Spontaneous
  Country: US (occurrence: None)
  Receive Date: 20140724
  Receipt Date: 20140724
  Transmission Date: 20150326
  Serious: Yes (Life-Threatening)
  Sender: FDA-Public Use
  Company Number: None

PATIENT
  Age: 66 Year
  Sex: Female
  Weight: 72.58 kg

DRUGS (1)
  1. ARMOUR THYROID [Suspect]
     Active Substance: THYROID, PORCINE\THYROID, UNSPECIFIED
     Indication: BLOOD THYROID STIMULATING HORMONE DECREASED
     Dosage: 1, THEN 2, THEN 3 TWICE DAILY TAKEN BY MOUTH
     Route: 048
     Dates: start: 20130315, end: 20140423

REACTIONS (3)
  - Depression suicidal [None]
  - Feeling abnormal [None]
  - Decreased activity [None]

NARRATIVE: CASE EVENT DATE: 20140423
